FAERS Safety Report 9440719 (Version 1)
Quarter: 2013Q3

REPORT INFORMATION
  Report Type: Spontaneous
  Country: US (occurrence: None)
  Receive Date: 20130801
  Receipt Date: 20130801
  Transmission Date: 20140515
  Serious: Yes (Other)
  Sender: FDA-Public Use
  Company Number: JPI-P-034110

PATIENT
  Age: 47 Year
  Sex: Male

DRUGS (8)
  1. XYREM [Suspect]
     Indication: SLEEP DISORDER
     Dosage: 4.5 GM ( 2.25 GM, 2 IN 1 D), ORAL
     Route: 048
     Dates: start: 20091012, end: 2009
  2. PREGABALIN [Suspect]
     Indication: PRODUCT USED FOR UNKNOWN INDICATION
  3. ATORVASTATIN CALCIUM [Concomitant]
  4. BUPROPION HYDROCHLORIDE [Concomitant]
  5. CYCLOSPORINE [Concomitant]
  6. NALTREXONE HYDROCHLORIDE [Concomitant]
  7. PANTOPRAZOLE SODIUM [Concomitant]
  8. TADALAFIL [Concomitant]

REACTIONS (1)
  - Prostate cancer [None]
